FAERS Safety Report 5164417-2 (Version None)
Quarter: 2006Q4

REPORT INFORMATION
  Report Type: 
  Country: None (occurrence: None)
  Receive Date: 20061205
  Receipt Date: 20061129
  Transmission Date: 20070319
  Serious: Yes (Other)
  Sender: FDA-Public Use
  Company Number: 2006UW26804

PATIENT
  Age: 52 Year
  Sex: Female

DRUGS (6)
  1. ARIMIDEX [Suspect]
     Indication: BREAST CANCER FEMALE
     Route: 048
     Dates: start: 20050101
  2. PRILOSEC [Concomitant]
     Route: 048
  3. ASPIRIN [Concomitant]
  4. CALCIUM [Concomitant]
  5. ANTIHISTAMINES [Concomitant]
  6. IBUPROFEN [Concomitant]

REACTIONS (7)
  - ARTHRALGIA [None]
  - AUTOIMMUNE DISORDER [None]
  - ERYTHEMA NODOSUM [None]
  - NODULE ON EXTREMITY [None]
  - OEDEMA [None]
  - OEDEMA PERIPHERAL [None]
  - RHEUMATOID FACTOR [None]
